FAERS Safety Report 5623780-6 (Version None)
Quarter: 2008Q1

REPORT INFORMATION
  Report Type: 
  Country: None (occurrence: None)
  Receive Date: 20080207
  Receipt Date: 20080123
  Transmission Date: 20080703
  Serious: Yes (Congenital Anomaly)
  Sender: FDA-Public Use
  Company Number: 8028811

PATIENT
  Sex: Female
  Weight: 3.348 kg

DRUGS (8)
  1. KEPPRA [Suspect]
     Indication: EPILEPSY
     Dosage: 3000 MG/D; TRP
     Route: 064
     Dates: end: 20071215
  2. TEGRETOL [Suspect]
     Indication: CONVULSION
     Dosage: 1600 MG/D; TRP
     Route: 064
     Dates: end: 20071215
  3. TEGRETOL [Suspect]
     Indication: CONVULSION
     Dosage: 1800 MG, D; PO
     Route: 048
  4. OMEGA FATTY ACID [Concomitant]
  5. ZOLOFT [Concomitant]
  6. VITAMIN TAB [Concomitant]
  7. FOLIC ACID [Concomitant]
  8. VITAMIN K [Concomitant]

REACTIONS (2)
  - CLEFT PALATE [None]
  - DRUG EXPOSURE DURING PREGNANCY [None]
